FAERS Safety Report 4377262-2 (Version None)
Quarter: 2004Q2

REPORT INFORMATION
  Report Type: 
  Country: None (occurrence: None)
  Receive Date: 20040609
  Receipt Date: 20040312
  Transmission Date: 20050107
  Serious: No
  Sender: FDA-Public Use
  Company Number: 2004203894US

PATIENT
  Age: 28 Year
  Sex: Female

DRUGS (5)
  1. BEXTRA [Suspect]
     Indication: PAIN
     Dosage: 10 MG, QD, UNK
     Dates: start: 20040305
  2. NEURONTIN [Concomitant]
  3. PAXIL [Concomitant]
  4. LITHIUM (LITHIUM) [Concomitant]
  5. KLONOPIN [Concomitant]

REACTIONS (2)
  - HEADACHE [None]
  - ILL-DEFINED DISORDER [None]
